FAERS Safety Report 15956558 (Version 1)
Quarter: 2019Q1

REPORT INFORMATION
  Report Type: Spontaneous
  Country: CA (occurrence: CA)
  Receive Date: 20190213
  Receipt Date: 20190213
  Transmission Date: 20190417
  Serious: Yes (Life-Threatening, Hospitalization, Other)
  Sender: FDA-Public Use
  Company Number: CA-JNJFOC-20190209832

PATIENT
  Age: 49 Year
  Sex: Male

DRUGS (5)
  1. FUMAGILLIN [Concomitant]
     Active Substance: FUMAGILLIN
     Route: 065
  2. ALBENDAZOLE. [Concomitant]
     Active Substance: ALBENDAZOLE
     Route: 065
  3. TRIMETHOPRIM SULFAMETHOXAZOLE [Concomitant]
     Active Substance: SULFAMETHOXAZOLE\TRIMETHOPRIM
     Dosage: 160?800 MG TWICE DAILY
     Route: 065
  4. IBRUTINIB [Suspect]
     Active Substance: IBRUTINIB
     Indication: CHRONIC LYMPHOCYTIC LEUKAEMIA REFRACTORY
     Route: 048
  5. PYRIMETHAMINE [Concomitant]
     Active Substance: PYRIMETHAMINE
     Route: 065

REACTIONS (4)
  - Pyrexia [Unknown]
  - Febrile neutropenia [Unknown]
  - Pneumonia [Unknown]
  - Polymyositis [Unknown]
